FAERS Safety Report 20234113 (Version 1)
Quarter: 2021Q4

REPORT INFORMATION
  Report Type: Spontaneous
  Country: US (occurrence: US)
  Receive Date: 20211227
  Receipt Date: 20211227
  Transmission Date: 20220303
  Serious: No
  Sender: FDA-Public Use
  Company Number: US-FOUNDATIONCONSUMERHC-2021-US-014704

PATIENT
  Age: 28 Year
  Sex: Female
  Weight: 92.99 kg

DRUGS (1)
  1. TAKE ACTION [Suspect]
     Active Substance: LEVONORGESTREL
     Indication: Post coital contraception
     Dosage: 1.5 MG TWO TIMES
     Route: 048
     Dates: start: 20210516, end: 20210606

REACTIONS (6)
  - Menstruation delayed [Not Recovered/Not Resolved]
  - Back pain [Recovered/Resolved]
  - Fluid retention [Recovered/Resolved]
  - Vaginal haemorrhage [Recovered/Resolved]
  - Intentional product misuse [Recovered/Resolved]
  - Product use in unapproved indication [Recovered/Resolved]

NARRATIVE: CASE EVENT DATE: 20210516
